FAERS Safety Report 8313370-9 (Version None)
Quarter: 2012Q2

REPORT INFORMATION
  Report Type: 
  Country: None (occurrence: None)
  Receive Date: 20120425
  Receipt Date: 20120425
  Transmission Date: 20120825
  Serious: Yes (Disabling)
  Sender: FDA-Public Use
  Company Number: None

PATIENT
  Sex: Male
  Weight: 68.0396 kg

DRUGS (1)
  1. PRADAXA [Suspect]
     Indication: HEART RATE IRREGULAR
     Dosage: 150 MG 2 X DAILY ORAL
     Route: 048
     Dates: start: 20111001, end: 20111015

REACTIONS (2)
  - AGE-RELATED MACULAR DEGENERATION [None]
  - EPISTAXIS [None]
